FAERS Safety Report 7466907-6 (Version None)
Quarter: 2011Q2

REPORT INFORMATION
  Report Type: 
  Country: None (occurrence: None)
  Receive Date: 20110509
  Receipt Date: 20110303
  Transmission Date: 20111010
  Serious: Yes (Hospitalization, Other)
  Sender: FDA-Public Use
  Company Number: US-BAYER-2010-004390

PATIENT
  Age: 16 Year
  Sex: Female
  Weight: 77.098 kg

DRUGS (6)
  1. METFORMIN [Concomitant]
     Indication: BLOOD GLUCOSE ABNORMAL
     Dosage: UNK
     Route: 048
     Dates: start: 20050830, end: 20070727
  2. GLUCOPHAGE [Concomitant]
     Dosage: 500 MG, BID
     Route: 048
  3. YASMIN [Suspect]
     Indication: MENSTRUATION IRREGULAR
     Dosage: UNK
     Route: 048
     Dates: start: 20060929, end: 20071125
  4. YASMIN [Suspect]
     Dosage: UNK
     Dates: start: 20081125, end: 20090916
  5. AZITHROMYCIN [Concomitant]
     Route: 048
  6. DROSPIRENONE AND ETHINYL ESTRADIOL [Suspect]
     Indication: MENSTRUATION IRREGULAR
     Dosage: UNK
     Route: 048
     Dates: start: 20071126, end: 20081125

REACTIONS (5)
  - ABDOMINAL PAIN [None]
  - GALLBLADDER DISORDER [None]
  - VOMITING [None]
  - CHOLELITHIASIS [None]
  - BILIARY DILATATION [None]
